FAERS Safety Report 9419509 (Version 1)
Quarter: 2013Q3

REPORT INFORMATION
  Report Type: Spontaneous
  Country: US (occurrence: None)
  Receive Date: 20130724
  Receipt Date: 20130724
  Transmission Date: 20140515
  Serious: Yes (Life-Threatening, Hospitalization, Other)
  Sender: FDA-Public Use
  Company Number: None

PATIENT
  Age: 47 Year
  Sex: Female

DRUGS (9)
  1. MIRENA IUD [Suspect]
     Dates: start: 20080723
  2. BYSTOLIC [Concomitant]
  3. VITAMINS [Concomitant]
  4. IUD [Concomitant]
  5. VALTRA [Concomitant]
  6. MULTIVITAMIN [Concomitant]
  7. ALEVE [Concomitant]
  8. DULCOLAX (BISACODYL) [Concomitant]
  9. AFRIN [Concomitant]

REACTIONS (6)
  - Procedural pain [None]
  - Device physical property issue [None]
  - Procedural pain [None]
  - Post procedural haemorrhage [None]
  - Embedded device [None]
  - Discomfort [None]
